FAERS Safety Report 16351094 (Version 2)
Quarter: 2019Q3

REPORT INFORMATION
  Report Type: Report from Study
  Country: DE (occurrence: DE)
  Receive Date: 20190524
  Receipt Date: 20190731
  Transmission Date: 20191004
  Serious: Yes (Other)
  Sender: FDA-Public Use
  Company Number: DE-BRISTOL-MYERS SQUIBB COMPANY-BMS-2019-019550

PATIENT
  Age: 46 Year
  Sex: Female

DRUGS (6)
  1. NIVOLUMAB [Suspect]
     Active Substance: NIVOLUMAB
     Indication: MALIGNANT MELANOMA
     Dosage: 57 MG, UNK
     Route: 042
     Dates: start: 20170811
  2. FERRO-SANOL DUODENAL [Concomitant]
     Active Substance: FERROUS GLYCINE SULFATE
     Indication: PRODUCT USED FOR UNKNOWN INDICATION
     Dosage: 25 MILLIGRAM
     Route: 065
     Dates: start: 201907
  3. NIVOLUMAB [Suspect]
     Active Substance: NIVOLUMAB
     Indication: PRODUCT USED FOR UNKNOWN INDICATION
     Dosage: 480 MG, Q4WK
     Route: 042
     Dates: start: 20181102
  4. HYDROCORTISON [HYDROCORTISONE] [Concomitant]
     Indication: PRODUCT USED FOR UNKNOWN INDICATION
     Dosage: 12.5 MILLIGRAM
     Route: 065
  5. CLOTRIMAZOLE. [Concomitant]
     Active Substance: CLOTRIMAZOLE
     Indication: PRODUCT USED FOR UNKNOWN INDICATION
     Route: 065
  6. ZOPICLONE [Concomitant]
     Active Substance: ZOPICLONE
     Indication: PRODUCT USED FOR UNKNOWN INDICATION
     Dosage: 3.75 MILLIGRAM
     Route: 065

REACTIONS (10)
  - Influenza like illness [Recovered/Resolved]
  - Vulvovaginal candidiasis [Recovering/Resolving]
  - Autoimmune colitis [Recovering/Resolving]
  - Insomnia [Unknown]
  - Diarrhoea [Recovering/Resolving]
  - Myalgia [Not Recovered/Not Resolved]
  - Nausea [Unknown]
  - Autoimmune hepatitis [Unknown]
  - Arthralgia [Unknown]
  - Skin hyperpigmentation [Recovered/Resolved]

NARRATIVE: CASE EVENT DATE: 20190111
